FAERS Safety Report 5279483-3 (Version None)
Quarter: 2007Q1

REPORT INFORMATION
  Report Type: 
  Country: None (occurrence: None)
  Receive Date: 20070328
  Receipt Date: 20070320
  Transmission Date: 20070707
  Serious: Yes (Hospitalization, Other)
  Sender: FDA-Public Use
  Company Number: US-PFIZER INC-2004242972US

PATIENT
  Sex: Male
  Weight: 90.7 kg

DRUGS (4)
  1. BEXTRA [Suspect]
     Indication: PAIN
  2. BEXTRA [Suspect]
     Indication: ARTHRITIS
  3. BEXTRA [Suspect]
     Indication: BACK INJURY
  4. ZOCOR [Concomitant]
     Route: 048

REACTIONS (2)
  - AMNESIA [None]
  - MYOCARDIAL INFARCTION [None]
